FAERS Safety Report 6164698-2 (Version None)
Quarter: 2009Q2

REPORT INFORMATION
  Report Type: 
  Country: None (occurrence: None)
  Receive Date: 20090423
  Receipt Date: 20090414
  Transmission Date: 20091009
  Serious: Yes (Hospitalization)
  Sender: FDA-Public Use
  Company Number: CH-ASTRAZENECA-2009PK01067

PATIENT
  Age: 77 Year
  Sex: Male
  Weight: 88 kg

DRUGS (7)
  1. BELOC ZOK [Suspect]
     Indication: ESSENTIAL HYPERTENSION
     Route: 048
     Dates: end: 20081001
  2. MARCUMAR [Concomitant]
     Indication: HEART VALVE REPLACEMENT
     Route: 048
  3. CO-RENITEN [Concomitant]
     Indication: ESSENTIAL HYPERTENSION
     Dosage: 12.5 MG 7 20 MG
     Route: 048
  4. AMLO ECO [Concomitant]
     Indication: ESSENTIAL HYPERTENSION
     Route: 048
  5. ZYLORIC [Concomitant]
     Indication: HYPERURICAEMIA
     Route: 048
  6. CONDROSULF [Concomitant]
     Indication: OSTEOARTHRITIS
     Route: 048
  7. ASACOL [Concomitant]
     Route: 048

REACTIONS (5)
  - ATRIOVENTRICULAR BLOCK COMPLETE [None]
  - ATRIOVENTRICULAR BLOCK FIRST DEGREE [None]
  - BLOOD POTASSIUM INCREASED [None]
  - BRADYCARDIA [None]
  - SYNCOPE [None]
